FAERS Safety Report 7537095-2 (Version None)
Quarter: 2011Q2

REPORT INFORMATION
  Report Type: 
  Country: None (occurrence: None)
  Receive Date: 20110609
  Receipt Date: 20110530
  Transmission Date: 20111010
  Serious: Yes (Other)
  Sender: FDA-Public Use
  Company Number: PHHY2011BR47970

PATIENT
  Sex: Female

DRUGS (1)
  1. TEGRETOL-XR [Suspect]
     Dosage: 1/2  TABLET IN THE MORNING AND 2 AT NIGHT (EVERY 12 HOURS).

REACTIONS (1)
  - EPILEPSY [None]
